FAERS Safety Report 4404428-5 (Version None)
Quarter: 2004Q3

REPORT INFORMATION
  Report Type: 
  Country: None (occurrence: None)
  Receive Date: 20040719
  Receipt Date: 20040705
  Transmission Date: 20050211
  Serious: Yes (Hospitalization, Other)
  Sender: FDA-Public Use
  Company Number: 032-0981-990222

PATIENT
  Age: 47 Year
  Sex: Male
  Weight: 72.2 kg

DRUGS (4)
  1. ATORVASTATIN CALCIUM [Suspect]
     Indication: CORONARY ARTERY DISEASE
     Dosage: 10 MG (1 IN 1 D), ORAL
     Route: 048
     Dates: start: 19980731, end: 19981001
  2. ACETYLSALICYLIC ACID SRT [Concomitant]
  3. ATORVASTATIN CALCIUM [Concomitant]
  4. ATORVASTATIN CALCIUM [Concomitant]

REACTIONS (2)
  - LIVER FUNCTION TEST ABNORMAL [None]
  - RECTAL CANCER [None]
